FAERS Safety Report 8858768 (Version 1)
Quarter: 2012Q4

REPORT INFORMATION
  Report Type: Spontaneous
  Country: US (occurrence: None)
  Receive Date: 20121019
  Receipt Date: 20121019
  Transmission Date: 20130627
  Serious: Yes (Hospitalization)
  Sender: FDA-Public Use
  Company Number: US-INDICUS PHARMA-000034

PATIENT
  Age: 65 Year
  Sex: Female

DRUGS (1)
  1. DONEPEZIL (DONEPEZIL) [Suspect]
     Indication: ALZHEIMER^S DISEASE
     Dosage: 5.0-Mg-1.0Days

REACTIONS (1)
  - Mania [None]
